FAERS Safety Report 8114033-5 (Version None)
Quarter: 2012Q1

REPORT INFORMATION
  Report Type: 
  Country: None (occurrence: None)
  Receive Date: 20120203
  Receipt Date: 20120125
  Transmission Date: 20120608
  Serious: Yes (Hospitalization)
  Sender: FDA-Public Use
  Company Number: JP-ASTRAZENECA-2012SE06343

PATIENT
  Sex: Female
  Weight: 56 kg

DRUGS (7)
  1. CANDESARTAN CILEXETIL [Suspect]
     Indication: HYPERTENSION
     Route: 048
     Dates: start: 20080723
  2. EPADEL S [Suspect]
     Indication: ARTERIOSCLEROSIS
     Route: 048
     Dates: start: 20071127
  3. AZULFIDINE [Concomitant]
     Route: 048
  4. BREDININ [Concomitant]
     Route: 048
     Dates: start: 20081101
  5. RHEUMATREX [Concomitant]
     Route: 048
     Dates: start: 20080401
  6. ENBREL [Suspect]
     Indication: RHEUMATOID ARTHRITIS
     Route: 058
     Dates: start: 20100524, end: 20100816
  7. ENBREL [Suspect]
     Route: 058
     Dates: start: 20100827

REACTIONS (2)
  - LOSS OF CONSCIOUSNESS [None]
  - ORTHOSTATIC HYPOTENSION [None]
